FAERS Safety Report 5789153-0 (Version None)
Quarter: 2008Q2

REPORT INFORMATION
  Report Type: 
  Country: None (occurrence: None)
  Receive Date: 20080626
  Receipt Date: 20071210
  Transmission Date: 20081010
  Serious: No
  Sender: FDA-Public Use
  Company Number: US-ASTRAZENECA-2007UW28189

PATIENT
  Age: 78 Year
  Sex: Female
  Weight: 44.5 kg

DRUGS (4)
  1. PULMICORT RESPULES [Suspect]
     Indication: COUGH
     Route: 055
     Dates: start: 20071201
  2. IPRATROPIUM BROMIDE [Concomitant]
  3. STALEVO 100 [Concomitant]
  4. REQUIP [Concomitant]

REACTIONS (3)
  - COUGH [None]
  - SOMNOLENCE [None]
  - VISION BLURRED [None]
